FAERS Safety Report 9257396 (Version 1)
Quarter: 2013Q1

REPORT INFORMATION
  Report Type: Spontaneous
  Country: US (occurrence: None)
  Receive Date: 20121212
  Receipt Date: 20121212
  Transmission Date: 20140127
  Serious: No
  Sender: FDA-Public Use
  Company Number: 2012SP020839

PATIENT
  Age: 58 Year
  Sex: Male
  Weight: 72.6 kg

DRUGS (3)
  1. VICTRELIS [Suspect]
     Indication: HEPATITIS C
     Dosage: 04/05/2012 TO ONGOING, CAPSULE, 800 MG, Q8H FOR 32 WEEKS, ORAL
  2. RIBAVIRIN [Suspect]
     Indication: HEPATITIS C
     Dates: start: 20120405
  3. PEGASYS [Suspect]
     Indication: HEPATITIS C
     Dates: start: 20120405

REACTIONS (8)
  - Injection site reaction [None]
  - White blood cell count decreased [None]
  - Oropharyngeal pain [None]
  - Irritability [None]
  - Influenza like illness [None]
  - Red blood cell count decreased [None]
  - Stomatitis [None]
  - Pyrexia [None]
